FAERS Safety Report 10802451 (Version 1)
Quarter: 2015Q1

REPORT INFORMATION
  Report Type: Report from Study
  Country: DE (occurrence: PL)
  Receive Date: 20150217
  Receipt Date: 20150217
  Transmission Date: 20150721
  Serious: Yes (Death, Hospitalization)
  Sender: FDA-Public Use
  Company Number: DE-ACTELION-A-US2014-102570

PATIENT
  Age: 40 Year
  Sex: Female

DRUGS (3)
  1. VENTAVIS [Suspect]
     Active Substance: ILOPROST
     Indication: PULMONARY ARTERIAL HYPERTENSION
     Dosage: 30 MCG, 6 INHALATIONS / 24 HOURS
     Route: 055
     Dates: start: 20140214, end: 20141222
  2. FUROSEMID [Suspect]
     Active Substance: FUROSEMIDE
     Indication: PULMONARY ARTERIAL HYPERTENSION
     Route: 048
  3. REVATIO [Concomitant]
     Active Substance: SILDENAFIL CITRATE
     Dosage: UNK
     Dates: start: 20140613, end: 20141222

REACTIONS (5)
  - Oedema [Unknown]
  - Infection [Fatal]
  - Dyspnoea [Unknown]
  - Cough [Unknown]
  - Asthenia [Unknown]

NARRATIVE: CASE EVENT DATE: 20141222
